FAERS Safety Report 18320609 (Version 1)
Quarter: 2020Q3

REPORT INFORMATION
  Report Type: Report from Study
  Country: CA (occurrence: CA)
  Receive Date: 20200928
  Receipt Date: 20200928
  Transmission Date: 20201103
  Serious: Yes (Other)
  Sender: FDA-Public Use
  Company Number: CA-PFIZER INC-2020370573

PATIENT
  Sex: Male

DRUGS (6)
  1. METHOTREXATE SODIUM. [Suspect]
     Active Substance: METHOTREXATE SODIUM
     Route: 048
  2. OMEPRAZOLE. [Concomitant]
     Active Substance: OMEPRAZOLE
     Route: 048
  3. ONDANSETRON [Concomitant]
     Active Substance: ONDANSETRON
     Route: 048
  4. FOLIC ACID/IODINE/IRON [Concomitant]
     Active Substance: FOLIC ACID\MINERALS
     Route: 048
  5. CELECOXIB. [Concomitant]
     Active Substance: CELECOXIB
     Route: 048
  6. TYLENOL [Concomitant]
     Active Substance: ACETAMINOPHEN

REACTIONS (3)
  - Back pain [Unknown]
  - Polyarthritis [Unknown]
  - Therapy partial responder [Unknown]
